FAERS Safety Report 12631238 (Version 2)
Quarter: 2016Q3

REPORT INFORMATION
  Report Type: Spontaneous
  Country: US (occurrence: US)
  Receive Date: 20160808
  Receipt Date: 20160808
  Transmission Date: 20161109
  Serious: No
  Sender: FDA-Public Use
  Company Number: US-BEH-2015052959

PATIENT
  Age: 59 Year
  Sex: Female
  Weight: 54.4 kg

DRUGS (23)
  1. DILAUDID [Concomitant]
     Active Substance: HYDROMORPHONE HYDROCHLORIDE
  2. MORPHINE [Concomitant]
     Active Substance: MORPHINE
  3. CELEBREX [Concomitant]
     Active Substance: CELECOXIB
  4. AVINZA [Concomitant]
     Active Substance: MORPHINE SULFATE
  5. LISINOPRIL. [Concomitant]
     Active Substance: LISINOPRIL
  6. LEVOTHYROXINE. [Concomitant]
     Active Substance: LEVOTHYROXINE
  7. QVAR [Concomitant]
     Active Substance: BECLOMETHASONE DIPROPIONATE
  8. XANAX [Concomitant]
     Active Substance: ALPRAZOLAM
  9. BENADRYL [Concomitant]
     Active Substance: DIPHENHYDRAMINE HYDROCHLORIDE
  10. EPIPEN [Concomitant]
     Active Substance: EPINEPHRINE
     Indication: ANAPHYLACTIC REACTION
  11. BYSTOLIC [Concomitant]
     Active Substance: NEBIVOLOL HYDROCHLORIDE
  12. LMX [Concomitant]
     Active Substance: LIDOCAINE
  13. LEVAQUIN [Concomitant]
     Active Substance: LEVOFLOXACIN
  14. ASTEPRO [Concomitant]
     Active Substance: AZELASTINE HYDROCHLORIDE
  15. AMBIEN [Concomitant]
     Active Substance: ZOLPIDEM TARTRATE
  16. ZYRTEC [Concomitant]
     Active Substance: CETIRIZINE HYDROCHLORIDE
  17. ZANAFLEX [Concomitant]
     Active Substance: TIZANIDINE HYDROCHLORIDE
  18. CLARITIN [Concomitant]
     Active Substance: LORATADINE
  19. VORICONAZOLE. [Concomitant]
     Active Substance: VORICONAZOLE
  20. HIZENTRA [Suspect]
     Active Substance: HUMAN IMMUNOGLOBULIN G
     Indication: IMMUNODEFICIENCY COMMON VARIABLE
     Dosage: 4 GM 20 ML VIAL
     Route: 058
     Dates: start: 20150730, end: 20150730
  21. DIPHENHYDRAMINE. [Concomitant]
     Active Substance: DIPHENHYDRAMINE
  22. AMOXICILLIN. [Concomitant]
     Active Substance: AMOXICILLIN
  23. VERAPAMIL [Concomitant]
     Active Substance: VERAPAMIL HYDROCHLORIDE

REACTIONS (3)
  - Skin warm [Recovering/Resolving]
  - Lip blister [Recovering/Resolving]
  - Blister [Recovering/Resolving]

NARRATIVE: CASE EVENT DATE: 20150730
